FAERS Safety Report 6184999-1 (Version None)
Quarter: 2009Q2

REPORT INFORMATION
  Report Type: 
  Country: None (occurrence: None)
  Receive Date: 20090511
  Receipt Date: 20090317
  Transmission Date: 20091009
  Serious: No
  Sender: FDA-Public Use
  Company Number: A0773830A

PATIENT

DRUGS (1)
  1. COREG CR [Suspect]
     Dosage: 20MG PER DAY
     Route: 048

REACTIONS (2)
  - ABDOMINAL DISCOMFORT [None]
  - MUSCLE SPASMS [None]
